FAERS Safety Report 19978087 (Version 1)
Quarter: 2021Q4

REPORT INFORMATION
  Report Type: Spontaneous
  Country: US (occurrence: US)
  Receive Date: 20211020
  Receipt Date: 20211020
  Transmission Date: 20220303
  Serious: Yes (Other)
  Sender: FDA-Public Use
  Company Number: US-GLAXOSMITHKLINE-  US2021GSK215721

PATIENT

DRUGS (2)
  1. ZANTAC [Suspect]
     Active Substance: RANITIDINE HYDROCHLORIDE
     Indication: Gastritis erosive
     Dosage: UNK UNK, QD
     Route: 065
     Dates: start: 199901, end: 201912
  2. ZANTAC [Suspect]
     Active Substance: RANITIDINE HYDROCHLORIDE
     Indication: Gastritis erosive
     Dosage: UNK UNK, QD
     Route: 065
     Dates: start: 199901, end: 201912

REACTIONS (2)
  - Colorectal cancer [Unknown]
  - Prostate cancer [Unknown]
